FAERS Safety Report 19977385 (Version 2)
Quarter: 2021Q4

REPORT INFORMATION
  Report Type: Other
  Country: CA (occurrence: CA)
  Receive Date: 20211021
  Receipt Date: 20211202
  Transmission Date: 20220303
  Serious: Yes (Disabling, Other)
  Sender: FDA-Public Use
  Company Number: CA-CELLTRION INC.-2021CA014073

PATIENT

DRUGS (1)
  1. RITUXIMAB [Suspect]
     Active Substance: RITUXIMAB
     Indication: Systemic lupus erythematosus
     Dosage: 1000.0 MILLIGRAM
     Route: 042

REACTIONS (7)
  - Head injury [Unknown]
  - Memory impairment [Unknown]
  - Seizure [Unknown]
  - Visual impairment [Unknown]
  - Wheelchair user [Unknown]
  - Off label use [Unknown]
  - Off label use [Unknown]
